FAERS Safety Report 25776750 (Version 1)
Quarter: 2025Q3

REPORT INFORMATION
  Report Type: Spontaneous
  Country: US (occurrence: US)
  Receive Date: 20250909
  Receipt Date: 20250909
  Transmission Date: 20251020
  Serious: No
  Sender: DOMPE FARMACEUTICI
  Company Number: US-FARMAPROD-202503-0896

PATIENT
  Age: 76 Year
  Sex: Female

DRUGS (20)
  1. OXERVATE [Suspect]
     Active Substance: CENEGERMIN-BKBJ
     Indication: Neurotrophic keratopathy
     Route: 047
     Dates: start: 20250312
  2. OXERVATE [Suspect]
     Active Substance: CENEGERMIN-BKBJ
  3. OXERVATE [Suspect]
     Active Substance: CENEGERMIN-BKBJ
  4. SYSTANE BALANCE [Concomitant]
     Active Substance: PROPYLENE GLYCOL
  5. COLACE [Concomitant]
     Active Substance: DOCUSATE SODIUM
  6. LEXAPRO [Concomitant]
     Active Substance: ESCITALOPRAM OXALATE
  7. ADVIL [Concomitant]
     Active Substance: IBUPROFEN
  8. DIVALPROEX SODIUM [Concomitant]
     Active Substance: DIVALPROEX SODIUM
  9. VITAMIN D3 [Concomitant]
     Active Substance: CHOLECALCIFEROL
  10. AUSTEDO [Concomitant]
     Active Substance: DEUTETRABENAZINE
  11. VALTREX [Concomitant]
     Active Substance: VALACYCLOVIR HYDROCHLORIDE
  12. LEVOTHYROXINE SODIUM [Concomitant]
     Active Substance: LEVOTHYROXINE SODIUM
  13. ATIVAN [Concomitant]
     Active Substance: LORAZEPAM
  14. DIVALPROEX SODIUM [Concomitant]
     Active Substance: DIVALPROEX SODIUM
  15. LAMOTRIGINE [Concomitant]
     Active Substance: LAMOTRIGINE
  16. LACTOSE [Concomitant]
     Active Substance: LACTOSE
  17. AMITIZA [Concomitant]
     Active Substance: LUBIPROSTONE
  18. MOXIFLOXACIN [Concomitant]
     Active Substance: MOXIFLOXACIN
     Indication: Ulcerative keratitis
     Route: 047
     Dates: start: 20250418, end: 20250421
  19. MOXIFLOXACIN [Concomitant]
     Active Substance: MOXIFLOXACIN
     Route: 047
     Dates: start: 20250421, end: 20250426
  20. MOXIFLOXACIN [Concomitant]
     Active Substance: MOXIFLOXACIN
     Route: 047
     Dates: start: 20250426

REACTIONS (5)
  - Ulcerative keratitis [Recovering/Resolving]
  - Dry eye [Unknown]
  - Lacrimation increased [Unknown]
  - Eye pain [Unknown]
  - Photophobia [Unknown]

NARRATIVE: CASE EVENT DATE: 20250418
